FAERS Safety Report 9474187 (Version 1)
Quarter: 2013Q3

REPORT INFORMATION
  Report Type: Spontaneous
  Country: US (occurrence: US)
  Receive Date: 20130823
  Receipt Date: 20130823
  Transmission Date: 20140515
  Serious: Yes (Other)
  Sender: FDA-Public Use
  Company Number: US-JNJFOC-20130809374

PATIENT
  Age: 71 Year
  Sex: Female
  Weight: 29.48 kg

DRUGS (11)
  1. XARELTO [Suspect]
     Indication: PULMONARY EMBOLISM
     Dosage: NIGHTLY
     Route: 048
     Dates: start: 201305
  2. OMEPRAZOLE [Concomitant]
     Indication: GASTROOESOPHAGEAL REFLUX DISEASE
     Route: 048
  3. HYDROXYZINE [Concomitant]
     Indication: ANXIETY
     Route: 048
     Dates: start: 201301
  4. FLONASE [Concomitant]
     Indication: MULTIPLE ALLERGIES
     Route: 065
     Dates: start: 2012
  5. FOLIC ACID [Concomitant]
     Route: 048
     Dates: start: 2013
  6. DILTIAZEM [Concomitant]
     Indication: HEART RATE IRREGULAR
     Route: 048
     Dates: start: 2012
  7. FISH OIL [Concomitant]
     Route: 065
     Dates: start: 2012
  8. VITAMIN D [Concomitant]
     Route: 065
  9. ASPIRIN [Concomitant]
     Route: 065
  10. MULTIVITAMINS [Concomitant]
     Route: 065
  11. OXYGEN [Concomitant]
     Dosage: AT NIGHT
     Route: 065

REACTIONS (1)
  - Breast mass [Not Recovered/Not Resolved]
